FAERS Safety Report 20832056 (Version 1)
Quarter: 2022Q2

REPORT INFORMATION
  Report Type: Other
  Country: None (occurrence: US)
  Receive Date: 20220516
  Receipt Date: 20220516
  Transmission Date: 20220721
  Serious: Yes (Hospitalization, Other)
  Sender: FDA-Public Use
  Company Number: US-Innogenix, LLC-2128792

PATIENT
  Age: 37 Year
  Sex: Female

DRUGS (6)
  1. BACLOFEN [Suspect]
     Active Substance: BACLOFEN
     Indication: Back pain
     Route: 065
  2. NALTREXONE HYDROCHLORIDE [Concomitant]
     Active Substance: NALTREXONE HYDROCHLORIDE
     Route: 042
  3. AMITRIPTYLINE HYDROCHLORIDE [Concomitant]
     Active Substance: AMITRIPTYLINE HYDROCHLORIDE
     Route: 065
  4. MODAFINIL [Concomitant]
     Active Substance: MODAFINIL
     Route: 065
  5. PROPOFOL [Concomitant]
     Active Substance: PROPOFOL
     Route: 040
  6. LEVETIRACETAM [Concomitant]
     Active Substance: LEVETIRACETAM

REACTIONS (5)
  - Coma [Recovered/Resolved]
  - Hypoxic-ischaemic encephalopathy [Recovered/Resolved]
  - Toxicity to various agents [Recovered/Resolved]
  - Overdose [Recovered/Resolved]
  - Product use in unapproved indication [Unknown]
